FAERS Safety Report 5782079-8 (Version None)
Quarter: 2008Q2

REPORT INFORMATION
  Report Type: 
  Country: None (occurrence: None)
  Receive Date: 20080623
  Receipt Date: 20080613
  Transmission Date: 20081010
  Serious: Yes (Other)
  Sender: FDA-Public Use
  Company Number: US-JNJFOC-20060400445

PATIENT
  Sex: Female
  Weight: 149.69 kg

DRUGS (2)
  1. RISPERDAL [Suspect]
     Indication: ANTIDEPRESSANT THERAPY
  2. ZYPREXA [Suspect]
     Indication: DRUG USE FOR UNKNOWN INDICATION

REACTIONS (12)
  - ADVERSE DRUG REACTION [None]
  - CARDIOMYOPATHY [None]
  - DIABETES MELLITUS [None]
  - DRUG HYPERSENSITIVITY [None]
  - HYPERSENSITIVITY [None]
  - INSOMNIA [None]
  - LIP SWELLING [None]
  - PANCREATITIS [None]
  - PRURITUS [None]
  - RASH [None]
  - SEDATION [None]
  - SWELLING [None]
